FAERS Safety Report 4485324-4 (Version None)
Quarter: 2004Q4

REPORT INFORMATION
  Report Type: 
  Country: None (occurrence: None)
  Receive Date: 20041025
  Receipt Date: 20041025
  Transmission Date: 20050328
  Serious: Yes (Hospitalization)
  Sender: FDA-Public Use
  Company Number: None

PATIENT
  Age: 76 Year
  Sex: Male

DRUGS (12)
  1. EPTIFIBATIDE [Suspect]
     Indication: ACUTE CORONARY SYNDROME
     Dosage: SEE IMAGE
     Route: 042
     Dates: start: 20040627
  2. LOVENOX [Concomitant]
  3. NITROPASTE [Concomitant]
  4. AMARYL [Concomitant]
  5. ZOLOFT [Concomitant]
  6. DETROL [Concomitant]
  7. PROCARDIA [Concomitant]
  8. DECADRON [Concomitant]
  9. PEPCID [Concomitant]
  10. BENADRYL [Concomitant]
  11. INSULIN [Concomitant]
  12. ACEON [Concomitant]

REACTIONS (3)
  - BACK PAIN [None]
  - CHILLS [None]
  - PLATELET COUNT DECREASED [None]
